FAERS Safety Report 8575950-5 (Version None)
Quarter: 2012Q3

REPORT INFORMATION
  Report Type: 
  Country: None (occurrence: None)
  Receive Date: 20120807
  Receipt Date: 20120727
  Transmission Date: 20120928
  Serious: Yes (Hospitalization)
  Sender: FDA-Public Use
  Company Number: US-BAYER-2012-039293

PATIENT
  Age: 32 Year
  Sex: Female
  Weight: 121.54 kg

DRUGS (3)
  1. YAZ [Suspect]
     Indication: CONTRACEPTION
     Dosage: UNK
     Dates: start: 20100829, end: 20101212
  2. ZOFRAN [Concomitant]
  3. YAZ [Suspect]
     Dosage: UNK

REACTIONS (7)
  - INJURY [None]
  - RASH [None]
  - PULMONARY EMBOLISM [None]
  - ANXIETY [None]
  - PAIN [None]
  - GENERAL PHYSICAL HEALTH DETERIORATION [None]
  - EMOTIONAL DISTRESS [None]
